FAERS Safety Report 9614426 (Version 2)
Quarter: 2013Q4

REPORT INFORMATION
  Report Type: Spontaneous
  Country: GB (occurrence: GB)
  Receive Date: 20131011
  Receipt Date: 20131108
  Transmission Date: 20140711
  Serious: Yes (Hospitalization)
  Sender: FDA-Public Use
  Company Number: GB-JNJFOC-20131001818

PATIENT
  Sex: Female

DRUGS (3)
  1. STELARA [Suspect]
     Indication: PSORIASIS
     Route: 058
     Dates: start: 201309
  2. STELARA [Suspect]
     Indication: PSORIASIS
     Route: 058
     Dates: start: 201204, end: 201301
  3. AMITRIPTYLINE [Concomitant]
     Route: 065

REACTIONS (3)
  - Cholecystectomy [Recovered/Resolved]
  - Pleurisy [Unknown]
  - Psoriasis [Unknown]
